FAERS Safety Report 10029442 (Version 2)
Quarter: 2014Q2

REPORT INFORMATION
  Report Type: Spontaneous
  Country: BR (occurrence: BR)
  Receive Date: 20140322
  Receipt Date: 20140613
  Transmission Date: 20141212
  Serious: Yes (Other)
  Sender: FDA-Public Use
  Company Number: CHPA2014BR004203

PATIENT
  Age: 9 Month
  Sex: Male
  Weight: 8 kg

DRUGS (3)
  1. AGASTEN [Suspect]
     Indication: FOOD ALLERGY
     Dosage: 3 ML, Q12H
     Route: 048
     Dates: start: 20140314, end: 20140316
  2. AGASTEN [Suspect]
     Indication: DRUG ADMINISTERED TO PATIENT OF INAPPROPRIATE AGE
  3. AGASTEN [Suspect]
     Indication: OFF LABEL USE

REACTIONS (10)
  - Malnutrition [Recovering/Resolving]
  - Catarrh [Unknown]
  - Rhinitis [Unknown]
  - Pyrexia [Recovering/Resolving]
  - Vomiting [Recovering/Resolving]
  - Hypersomnia [Recovering/Resolving]
  - Diarrhoea [Recovering/Resolving]
  - Abdominal pain [Recovering/Resolving]
  - Decreased appetite [Recovering/Resolving]
  - Crying [Recovering/Resolving]
